FAERS Safety Report 10142395 (Version 1)
Quarter: 2014Q2

REPORT INFORMATION
  Report Type: Spontaneous
  Country: US (occurrence: US)
  Receive Date: 20140430
  Receipt Date: 20140430
  Transmission Date: 20141212
  Serious: No
  Sender: FDA-Public Use
  Company Number: US-009507513-1404USA015157

PATIENT
  Age: 55 Year
  Sex: Female

DRUGS (4)
  1. PEGINTRON [Suspect]
     Indication: HEPATITIS C
     Dosage: 0.5 ML, QW
     Route: 048
     Dates: start: 20140425
  2. REBETOL [Suspect]
     Indication: HEPATITIS C
     Dosage: 3AM AND PM, BID
     Route: 048
     Dates: start: 20140425
  3. SOVALDI [Concomitant]
     Dosage: 1, QD
     Route: 048
  4. PRINIVIL [Concomitant]
     Dosage: 1, QD
     Route: 048

REACTIONS (2)
  - Chills [Unknown]
  - Decreased appetite [Unknown]
